FAERS Safety Report 8953922 (Version 3)
Quarter: 2013Q1

REPORT INFORMATION
  Report Type: Report from Study
  Country: US (occurrence: US)
  Receive Date: 20121206
  Receipt Date: 20130206
  Transmission Date: 20140127
  Serious: Yes (Hospitalization, Other)
  Sender: FDA-Public Use
  Company Number: US-ABBOTT-12P-163-1014706-00

PATIENT
  Age: 55 None
  Sex: Male
  Weight: 77.18 kg

DRUGS (17)
  1. NIASPAN (COATED) [Suspect]
     Indication: CARDIOVASCULAR DISORDER
     Dates: start: 2000, end: 2007
  2. NIASPAN (COATED) [Suspect]
     Indication: PROPHYLAXIS
     Dates: start: 2007
  3. NIASPAN (COATED) [Suspect]
     Dates: start: 201210
  4. GEMFIBROZIL [Suspect]
     Indication: PRODUCT USED FOR UNKNOWN INDICATION
     Dates: start: 2000, end: 2003
  5. COUMADIN [Suspect]
     Indication: PRODUCT USED FOR UNKNOWN INDICATION
     Dates: start: 201210
  6. PRAVASTATIN [Concomitant]
     Indication: PRODUCT USED FOR UNKNOWN INDICATION
  7. WARFARIN [Concomitant]
     Indication: PRODUCT USED FOR UNKNOWN INDICATION
     Dates: start: 201211
  8. ASPIRIN [Concomitant]
     Indication: PRODUCT USED FOR UNKNOWN INDICATION
  9. ONGLYZA [Concomitant]
     Indication: PRODUCT USED FOR UNKNOWN INDICATION
     Dates: start: 201211
  10. FISH OIL [Concomitant]
     Indication: PRODUCT USED FOR UNKNOWN INDICATION
  11. MVT [Concomitant]
     Indication: PRODUCT USED FOR UNKNOWN INDICATION
  12. PLAVIX [Concomitant]
     Indication: PRODUCT USED FOR UNKNOWN INDICATION
     Dates: end: 201210
  13. IMDUR [Concomitant]
     Indication: PRODUCT USED FOR UNKNOWN INDICATION
  14. LOSARTAN [Concomitant]
     Indication: PRODUCT USED FOR UNKNOWN INDICATION
  15. COREG [Concomitant]
     Indication: PRODUCT USED FOR UNKNOWN INDICATION
  16. CATAPRES [Concomitant]
     Indication: PRODUCT USED FOR UNKNOWN INDICATION
  17. ZOCOR [Concomitant]
     Indication: PRODUCT USED FOR UNKNOWN INDICATION
     Dosage: 20MG QHS

REACTIONS (20)
  - Coronary arterial stent insertion [Recovered/Resolved]
  - Coronary arterial stent insertion [Recovered/Resolved]
  - Myocardial ischaemia [Recovered/Resolved]
  - Dyspnoea exertional [Recovered/Resolved]
  - Coronary artery disease [Recovered/Resolved]
  - Coronary artery stenosis [Recovered/Resolved]
  - Coronary artery stenosis [Recovered/Resolved]
  - Cardiac failure [Recovered/Resolved]
  - Angina pectoris [Recovered/Resolved]
  - Myocardial infarction [Recovered/Resolved]
  - Pericardial effusion [Recovered/Resolved]
  - Type 2 diabetes mellitus [Unknown]
  - Flushing [Not Recovered/Not Resolved]
  - Feeling hot [Not Recovered/Not Resolved]
  - Skin discolouration [Not Recovered/Not Resolved]
  - Influenza like illness [Recovered/Resolved]
  - Pain [Recovered/Resolved]
  - Epistaxis [Not Recovered/Not Resolved]
  - Blood glucose abnormal [Not Recovered/Not Resolved]
  - Vitamin D decreased [Not Recovered/Not Resolved]
